FAERS Safety Report 9672350 (Version 3)
Quarter: 2013Q4

REPORT INFORMATION
  Report Type: Report from Study
  Country: AU (occurrence: AU)
  Receive Date: 20131106
  Receipt Date: 20131113
  Transmission Date: 20140711
  Serious: Yes (Hospitalization)
  Sender: FDA-Public Use
  Company Number: AU-EXELIXIS-XL18413002864

PATIENT
  Age: 78 Year
  Sex: Male

DRUGS (12)
  1. XL184 [Suspect]
     Indication: PROSTATE CANCER
     Dosage: 60 MG, QD
     Route: 048
     Dates: start: 20130417, end: 20130613
  2. XL184 [Suspect]
     Dosage: 60 MG. QD
     Route: 048
     Dates: start: 20130620
  3. XL184 [Suspect]
     Indication: PROSTATE CANCER
     Dosage: 5 MG, BID
     Route: 048
     Dates: start: 20130417, end: 20130614
  4. XL184 [Suspect]
     Dosage: 5 MG, BID
     Route: 048
     Dates: start: 20130620
  5. OXYNORM [Concomitant]
  6. TARGIN [Concomitant]
  7. CALTRATE [Concomitant]
  8. CELEBREX [Concomitant]
  9. DOCUSATE SODIUM\SENNOSIDES [Concomitant]
  10. LYRICA [Concomitant]
  11. VITAMIN D [Concomitant]
  12. HALOPERIDOL [Concomitant]

REACTIONS (2)
  - Delirium [Recovered/Resolved]
  - Anal abscess [Not Recovered/Not Resolved]
